FAERS Safety Report 22155730 (Version 1)
Quarter: 2023Q1

REPORT INFORMATION
  Report Type: Report from Study
  Country: CA (occurrence: CA)
  Receive Date: 20230330
  Receipt Date: 20230330
  Transmission Date: 20230418
  Serious: Yes (Hospitalization, Other)
  Sender: FDA-Public Use
  Company Number: CA-TAKEDA-2023TUS030360

PATIENT
  Age: 31 Year
  Sex: Female
  Weight: 86.168 kg

DRUGS (5)
  1. VEDOLIZUMAB [Suspect]
     Active Substance: VEDOLIZUMAB
     Indication: Crohn^s disease
     Dosage: 300 MILLIGRAM
     Route: 042
     Dates: start: 20220418
  2. SYNTHROID [Concomitant]
     Active Substance: LEVOTHYROXINE SODIUM
     Dosage: 75 MICROGRAM, QD
  3. ZOLOFT [Concomitant]
     Active Substance: SERTRALINE HYDROCHLORIDE
     Indication: Depression
     Dosage: 150 MILLIGRAM, QD
  4. IRON [Concomitant]
     Active Substance: IRON
     Dosage: UNK UNK, Q2WEEKS
  5. FOLIC ACID [Concomitant]
     Active Substance: FOLIC ACID
     Dosage: UNK UNK, QD

REACTIONS (5)
  - Hyperemesis gravidarum [Unknown]
  - Dehydration [Unknown]
  - Pregnancy [Unknown]
  - Inflammation [Unknown]
  - Iron deficiency anaemia [Recovered/Resolved]
